FAERS Safety Report 8633120 (Version 4)
Quarter: 2014Q2

REPORT INFORMATION
  Report Type: Spontaneous
  Country: FR (occurrence: DE)
  Receive Date: 20120625
  Receipt Date: 20140408
  Transmission Date: 20141212
  Serious: Yes (Other)
  Sender: FDA-Public Use
  Company Number: DE-MYLANLABS-2012S1012722

PATIENT
  Age: 17 Year
  Sex: Male

DRUGS (6)
  1. CYSTAGON CAPSULES [Suspect]
     Indication: CYSTINOSIS
     Dosage: 32MG/KG
     Route: 048
     Dates: start: 1994, end: 201202
  2. CYSTAGON CAPSULES [Suspect]
     Indication: CYSTINOSIS
     Route: 048
     Dates: start: 201202
  3. DOCITON [Concomitant]
  4. AMLODIPINE [Concomitant]
  5. ELECTROLYTE /00909901/ [Concomitant]
  6. VITAMIN D [Concomitant]

REACTIONS (8)
  - Skin reaction [Not Recovered/Not Resolved]
  - Skin fragility [Not Recovered/Not Resolved]
  - Dermatitis [Not Recovered/Not Resolved]
  - Skin exfoliation [Not Recovered/Not Resolved]
  - Rash [Not Recovered/Not Resolved]
  - Eczema [Not Recovered/Not Resolved]
  - Skin striae [Not Recovered/Not Resolved]
  - Confluent and reticulate papillomatosis [Not Recovered/Not Resolved]
